FAERS Safety Report 8247763-5 (Version None)
Quarter: 2012Q1

REPORT INFORMATION
  Report Type: 
  Country: None (occurrence: None)
  Receive Date: 20120330
  Receipt Date: 20120321
  Transmission Date: 20120608
  Serious: Yes (Other)
  Sender: FDA-Public Use
  Company Number: DE-GLAXOSMITHKLINE-D0074981A

PATIENT
  Age: 55 Year
  Sex: Male

DRUGS (1)
  1. POTIGA [Suspect]
     Dosage: 1000MG PER DAY
     Route: 048

REACTIONS (3)
  - SINUS TACHYCARDIA [None]
  - HEART RATE INCREASED [None]
  - ELECTROCARDIOGRAM QT SHORTENED [None]
